FAERS Safety Report 16974870 (Version 1)
Quarter: 2019Q4

REPORT INFORMATION
  Report Type: Spontaneous
  Country: US (occurrence: US)
  Receive Date: 20191030
  Receipt Date: 20191030
  Transmission Date: 20200122
  Serious: Yes (Other)
  Sender: FDA-Public Use
  Company Number: US-NOVOPROD-692858

PATIENT
  Sex: Female

DRUGS (1)
  1. NOVOLOG MIX 70/30 [Suspect]
     Active Substance: INSULIN ASPART
     Indication: TYPE 2 DIABETES MELLITUS
     Dosage: UNK
     Route: 058
     Dates: start: 1977

REACTIONS (3)
  - Glaucoma [Unknown]
  - Follicular thyroid cancer [Not Recovered/Not Resolved]
  - Corneal disorder [Unknown]

NARRATIVE: CASE EVENT DATE: 2014
